FAERS Safety Report 9269716 (Version 8)
Quarter: 2016Q4

REPORT INFORMATION
  Report Type: Spontaneous
  Country: US (occurrence: US)
  Receive Date: 20130503
  Receipt Date: 20161121
  Transmission Date: 20170207
  Serious: Yes (Other)
  Sender: FDA-Public Use
  Company Number: US-009507513-1305USA000891

PATIENT
  Sex: Male
  Weight: 87.53 kg

DRUGS (3)
  1. FINASTERIDE. [Suspect]
     Active Substance: FINASTERIDE
     Dosage: 5 MG, UNK
     Route: 065
     Dates: start: 20110411, end: 20120501
  2. PROPECIA [Suspect]
     Active Substance: FINASTERIDE
     Indication: ALOPECIA
     Dosage: 1 MG, QD
     Route: 048
     Dates: start: 20060113
  3. FINASTERIDE. [Suspect]
     Active Substance: FINASTERIDE
     Dosage: 1 MG, UNK
     Route: 048
     Dates: start: 20130312

REACTIONS (18)
  - Fatigue [Unknown]
  - Cough [Unknown]
  - Pharyngitis [Unknown]
  - Musculoskeletal stiffness [Unknown]
  - Cough [Unknown]
  - Anxiety [Unknown]
  - Hypothyroidism [Not Recovered/Not Resolved]
  - Musculoskeletal chest pain [Unknown]
  - Epididymitis [Unknown]
  - Dyskinesia [Unknown]
  - Erectile dysfunction [Not Recovered/Not Resolved]
  - Depression [Not Recovered/Not Resolved]
  - Social avoidant behaviour [Unknown]
  - Back pain [Not Recovered/Not Resolved]
  - Testicular pain [Not Recovered/Not Resolved]
  - Muscle twitching [Unknown]
  - Nasal congestion [Unknown]
  - Obsessive thoughts [Unknown]

NARRATIVE: CASE EVENT DATE: 2006
